FAERS Safety Report 5225889-8 (Version None)
Quarter: 2007Q1

REPORT INFORMATION
  Report Type: 
  Country: None (occurrence: None)
  Receive Date: 20070130
  Receipt Date: 20070130
  Transmission Date: 20070707
  Serious: Yes (Other)
  Sender: FDA-Public Use
  Company Number: None

PATIENT
  Sex: Female
  Weight: 113.3993 kg

DRUGS (4)
  1. TRAMADOL HCL [Suspect]
     Indication: PAIN
     Dates: start: 20030724, end: 20030724
  2. HEPARIN [Concomitant]
  3. PEPCID [Concomitant]
  4. MULTI-VITAMIN [Concomitant]

REACTIONS (1)
  - GRAND MAL CONVULSION [None]
